FAERS Safety Report 11540552 (Version 1)
Quarter: 2015Q3

REPORT INFORMATION
  Report Type: Spontaneous
  Country: US (occurrence: US)
  Receive Date: 20150923
  Receipt Date: 20150923
  Transmission Date: 20151125
  Serious: No
  Sender: FDA-Public Use
  Company Number: US-BEH-2015049652

PATIENT
  Sex: Female
  Weight: 58.1 kg

DRUGS (13)
  1. PRIVIGEN [Suspect]
     Active Substance: HUMAN IMMUNOGLOBULIN G
     Dosage: 5 G VIALS (65 G AS DIRECTED)
     Route: 042
     Dates: start: 20150224
  2. PRIVIGEN [Suspect]
     Active Substance: HUMAN IMMUNOGLOBULIN G
     Dosage: 10 G VIALS (65 G AS DIRECTED)
     Route: 042
  3. CIPRO [Concomitant]
     Active Substance: CIPROFLOXACIN HYDROCHLORIDE
  4. PRIVIGEN [Suspect]
     Active Substance: HUMAN IMMUNOGLOBULIN G
     Dosage: 10 G VIALS (65 G AS DIRECTED)
     Route: 042
     Dates: start: 20150224
  5. PRIVIGEN [Suspect]
     Active Substance: HUMAN IMMUNOGLOBULIN G
     Dosage: 20 G VIALS (65 G AS DIRECTED)
     Route: 042
     Dates: start: 20150224
  6. PRIVIGEN [Suspect]
     Active Substance: HUMAN IMMUNOGLOBULIN G
     Dosage: 5 G VIALS (65 G AS DIRECTED)
     Route: 042
  7. DEXTROSE. [Concomitant]
     Active Substance: DEXTROSE
  8. EPIPEN [Concomitant]
     Active Substance: EPINEPHRINE
  9. ZYRTEC [Concomitant]
     Active Substance: CETIRIZINE HYDROCHLORIDE
  10. PRIVIGEN [Suspect]
     Active Substance: HUMAN IMMUNOGLOBULIN G
     Indication: CAPILLARY DISORDER
     Dosage: 20 G VIALS (65 G AS DIRECTED)
     Route: 042
  11. SODIUM CHLORIDE. [Concomitant]
     Active Substance: SODIUM CHLORIDE
  12. MULTIVITAMINS [Concomitant]
     Active Substance: VITAMINS
  13. DIPHENHYDRAMINE. [Concomitant]
     Active Substance: DIPHENHYDRAMINE

REACTIONS (2)
  - Urinary tract infection [Unknown]
  - Nasopharyngitis [Unknown]
